FAERS Safety Report 6088746-3 (Version None)
Quarter: 2009Q1

REPORT INFORMATION
  Report Type: 
  Country: None (occurrence: None)
  Receive Date: 20090224
  Receipt Date: 20090217
  Transmission Date: 20090719
  Serious: Yes (Other)
  Sender: FDA-Public Use
  Company Number: US-ASTRAZENECA-2009UW04538

PATIENT
  Sex: Female
  Weight: 79.4 kg

DRUGS (9)
  1. CRESTOR [Suspect]
     Indication: BLOOD CHOLESTEROL INCREASED
     Route: 048
     Dates: start: 20081201
  2. SOTALOL HCL [Concomitant]
  3. OMEPRAZOLE [Concomitant]
  4. LOVAZA [Concomitant]
  5. SYNTHROID [Concomitant]
  6. PLAVIX [Concomitant]
  7. ASPIRIN [Concomitant]
  8. LASIX [Concomitant]
  9. KLOR-CON [Concomitant]

REACTIONS (2)
  - ATRIAL FIBRILLATION [None]
  - HEART RATE INCREASED [None]
